FAERS Safety Report 6902566-6 (Version None)
Quarter: 2010Q3

REPORT INFORMATION
  Report Type: 
  Country: None (occurrence: None)
  Receive Date: 20100803
  Receipt Date: 20080602
  Transmission Date: 20110219
  Serious: No
  Sender: FDA-Public Use
  Company Number: US-PFIZER INC-2008046688

PATIENT
  Sex: Male
  Weight: 90.7 kg

DRUGS (5)
  1. LYRICA [Suspect]
     Indication: FIBROMYALGIA
     Dates: start: 20080513, end: 20080602
  2. PROPECIA [Concomitant]
  3. AMITIZA [Concomitant]
  4. GINKGO BILOBA [Concomitant]
  5. ALOES [Concomitant]

REACTIONS (1)
  - WEIGHT INCREASED [None]
